FAERS Safety Report 25785126 (Version 1)
Quarter: 2025Q3

REPORT INFORMATION
  Report Type: Spontaneous
  Country: EU (occurrence: EU)
  Receive Date: 20250910
  Receipt Date: 20250910
  Transmission Date: 20251020
  Serious: Yes (Other)
  Sender: AUROBINDO
  Company Number: EU-002147023-NVSC2023FR158320

PATIENT
  Weight: 50 kg

DRUGS (6)
  1. ENTECAVIR [Suspect]
     Active Substance: ENTECAVIR
     Indication: Chronic hepatitis B
     Dosage: 0.5 MILLIGRAM, ONCE A DAY
     Route: 065
     Dates: start: 20200122
  2. MYFORTIC [Suspect]
     Active Substance: MYCOPHENOLATE SODIUM
     Indication: Renal transplant
     Dosage: 360 MILLIGRAM, TWO TIMES A DAY
     Route: 065
     Dates: start: 20200122
  3. MYFORTIC [Suspect]
     Active Substance: MYCOPHENOLATE SODIUM
     Dosage: 720 MILLIGRAM, ONCE A DAY
     Route: 065
     Dates: start: 20200122
  4. DIENOGEST [Suspect]
     Active Substance: DIENOGEST
     Indication: Endometriosis
     Dosage: 2 MILLIGRAM, ONCE A DAY
     Route: 065
     Dates: start: 20221001
  5. PROGRAF [Suspect]
     Active Substance: TACROLIMUS
     Indication: Renal transplant
     Dosage: 9 MILLIGRAM, TWO TIMES A DAY
     Route: 065
     Dates: start: 20200122
  6. SOLIRIS [Suspect]
     Active Substance: ECULIZUMAB
     Indication: Atypical haemolytic uraemic syndrome
     Route: 065
     Dates: start: 20201023

REACTIONS (1)
  - Neutropenia [Not Recovered/Not Resolved]

NARRATIVE: CASE EVENT DATE: 20230419
